FAERS Safety Report 8459760-5 (Version None)
Quarter: 2012Q2

REPORT INFORMATION
  Report Type: 
  Country: None (occurrence: None)
  Receive Date: 20120622
  Receipt Date: 20120619
  Transmission Date: 20120825
  Serious: Yes (Hospitalization, Disabling, Other)
  Sender: FDA-Public Use
  Company Number: US-MERCK-1203USA00869

PATIENT
  Age: 72 Year
  Sex: Female
  Weight: 77 kg

DRUGS (11)
  1. FOSAMAX [Suspect]
     Indication: OSTEOPENIA
     Route: 048
     Dates: start: 20030101
  2. HYDROXYCHLOROQUINE SULFATE [Concomitant]
     Indication: RHEUMATOID ARTHRITIS
     Route: 065
     Dates: start: 20040101, end: 20050301
  3. FOSAMAX [Suspect]
     Route: 048
     Dates: start: 20080901
  4. METHOTREXATE [Concomitant]
     Indication: RHEUMATOID ARTHRITIS
     Route: 065
  5. TRIAMCINOLONE [Concomitant]
     Indication: HYPERSENSITIVITY
     Route: 065
  6. FOSAMAX [Suspect]
     Route: 048
     Dates: start: 20040101, end: 20090401
  7. FOLIC ACID [Concomitant]
     Indication: RHEUMATOID ARTHRITIS
     Route: 065
     Dates: start: 20090801, end: 20100101
  8. ARAVA [Concomitant]
     Indication: RHEUMATOID ARTHRITIS
     Route: 065
  9. PREDNISONE [Concomitant]
     Indication: RHEUMATOID ARTHRITIS
     Route: 065
  10. LEFLUNOMIDE [Concomitant]
     Indication: RHEUMATOID ARTHRITIS
     Route: 065
     Dates: start: 20061201, end: 20080901
  11. BEXTRA (PARECOXIB SODIUM) [Concomitant]
     Indication: RHEUMATOID ARTHRITIS
     Route: 065
     Dates: start: 20040101

REACTIONS (71)
  - ARTHRALGIA [None]
  - NITRITE URINE [None]
  - RHEUMATOID ARTHRITIS [None]
  - NAUSEA [None]
  - MACULAR HOLE [None]
  - HYPOTHYROIDISM [None]
  - DEVICE COMPONENT ISSUE [None]
  - THROMBOSIS [None]
  - ANXIETY [None]
  - APPENDIX DISORDER [None]
  - FALL [None]
  - MACULAR FIBROSIS [None]
  - DRUG INEFFECTIVE [None]
  - INSOMNIA [None]
  - ROSACEA [None]
  - INFECTION [None]
  - CARDIOMEGALY [None]
  - URINARY RETENTION [None]
  - ANKLE FRACTURE [None]
  - INTERVERTEBRAL DISC DISORDER [None]
  - TONSILLAR DISORDER [None]
  - INFUSION RELATED REACTION [None]
  - URINARY TRACT INFECTION [None]
  - OSTEOPOROSIS [None]
  - ORAL DISORDER [None]
  - EXOSTOSIS [None]
  - LOW TURNOVER OSTEOPATHY [None]
  - BACK DISORDER [None]
  - INCONTINENCE [None]
  - UTERINE DISORDER [None]
  - NASOPHARYNGITIS [None]
  - POLLAKIURIA [None]
  - LUNG DISORDER [None]
  - INTERVERTEBRAL DISC PROTRUSION [None]
  - FEMUR FRACTURE [None]
  - ADVERSE DRUG REACTION [None]
  - GAIT DISTURBANCE [None]
  - MACROCYTOSIS [None]
  - VOMITING [None]
  - IMMUNOSUPPRESSION [None]
  - CARPAL TUNNEL SYNDROME [None]
  - DEPRESSION [None]
  - FIBROMYALGIA [None]
  - RADICULOPATHY [None]
  - OSTEOARTHRITIS [None]
  - SPINAL OSTEOARTHRITIS [None]
  - WOUND [None]
  - OROPHARYNGEAL PAIN [None]
  - IRRITABLE BOWEL SYNDROME [None]
  - INCREASED TENDENCY TO BRUISE [None]
  - ADENOIDAL DISORDER [None]
  - HAEMATURIA [None]
  - HAEMORRHOIDS [None]
  - PRURITUS [None]
  - LIMB ASYMMETRY [None]
  - TARSAL TUNNEL SYNDROME [None]
  - DYSURIA [None]
  - ROTATOR CUFF SYNDROME [None]
  - BREAST CALCIFICATIONS [None]
  - ARTHROPATHY [None]
  - UROSEPSIS [None]
  - MYALGIA [None]
  - EYE PRURITUS [None]
  - INTRAOCULAR LENS IMPLANT [None]
  - VITREOUS DETACHMENT [None]
  - SYNOVITIS [None]
  - STRESS FRACTURE [None]
  - URINARY INCONTINENCE [None]
  - RASH [None]
  - MUSCLE DISORDER [None]
  - KLEBSIELLA INFECTION [None]
